FAERS Safety Report 13151174 (Version 4)
Quarter: 2017Q2

REPORT INFORMATION
  Report Type: Other
  Country: DE (occurrence: DE)
  Receive Date: 20170125
  Receipt Date: 20170515
  Transmission Date: 20170830
  Serious: Yes (Other)
  Sender: FDA-Public Use
  Company Number: DE-LABORATOIRE HRA PHARMA-1062363

PATIENT
  Age: 23 Year
  Sex: Female
  Weight: 59 kg

DRUGS (2)
  1. ELLA [Suspect]
     Active Substance: ULIPRISTAL ACETATE
     Indication: POST COITAL CONTRACEPTION
     Route: 048
     Dates: start: 20161209, end: 20161209
  2. MAXIM(ETHINYLESTRADIOL) [Concomitant]

REACTIONS (3)
  - Vaginal haemorrhage [None]
  - Unintended pregnancy [None]
  - Abortion spontaneous [None]

NARRATIVE: CASE EVENT DATE: 20170111
